FAERS Safety Report 10714239 (Version 1)
Quarter: 2015Q1

REPORT INFORMATION
  Report Type: Spontaneous
  Country: US (occurrence: US)
  Receive Date: 20150115
  Receipt Date: 20150115
  Transmission Date: 20150721
  Serious: No
  Sender: FDA-Public Use
  Company Number: US-ASTELLAS-2014US016742

PATIENT
  Age: 55 Year
  Sex: Female
  Weight: 60 kg

DRUGS (23)
  1. LIPITOR [Concomitant]
     Active Substance: ATORVASTATIN CALCIUM
     Indication: PRODUCT USED FOR UNKNOWN INDICATION
     Route: 048
  2. PREMARIN [Concomitant]
     Active Substance: ESTROGENS, CONJUGATED
     Indication: PRODUCT USED FOR UNKNOWN INDICATION
     Dosage: 0.625 MG/G, THRICE WEEKLY
     Route: 067
  3. PRILOSEC [Concomitant]
     Active Substance: OMEPRAZOLE MAGNESIUM
     Indication: PRODUCT USED FOR UNKNOWN INDICATION
     Route: 048
  4. TOPAMAX [Concomitant]
     Active Substance: TOPIRAMATE
     Indication: PRODUCT USED FOR UNKNOWN INDICATION
     Route: 048
  5. VALIUM [Concomitant]
     Active Substance: DIAZEPAM
     Indication: INCONTINENCE
     Dosage: UNK UNK, UNKNOWN FREQ.
     Route: 067
  6. XANAX [Concomitant]
     Active Substance: ALPRAZOLAM
     Indication: PRODUCT USED FOR UNKNOWN INDICATION
     Dosage: UNK UNK, UNKNOWN FREQ.
     Route: 048
  7. VAGIFEM [Concomitant]
     Active Substance: ESTRADIOL
     Indication: MICTURITION URGENCY
     Route: 067
  8. VITAMIN D3 [Concomitant]
     Active Substance: CHOLECALCIFEROL
     Indication: PRODUCT USED FOR UNKNOWN INDICATION
     Route: 048
  9. VICODIN [Concomitant]
     Active Substance: ACETAMINOPHEN\HYDROCODONE BITARTRATE
     Indication: PRODUCT USED FOR UNKNOWN INDICATION
     Dosage: 5/500MG - 10/1000MG, AT BEDTIME AS NEEDED
     Route: 048
  10. VITAMIN E                          /00110501/ [Concomitant]
     Indication: PRODUCT USED FOR UNKNOWN INDICATION
     Route: 048
  11. ESTRACE [Concomitant]
     Active Substance: ESTRADIOL
     Indication: INCONTINENCE
     Dosage: UNK UNK, UNKNOWN FREQ.
     Route: 065
  12. VAGIFEM [Concomitant]
     Active Substance: ESTRADIOL
     Indication: URINARY INCONTINENCE
  13. DITROPAN [Concomitant]
     Active Substance: OXYBUTYNIN CHLORIDE
     Indication: POLLAKIURIA
  14. MYRBETRIQ [Suspect]
     Active Substance: MIRABEGRON
     Indication: MICTURITION URGENCY
     Route: 048
     Dates: start: 20130826
  15. MYRBETRIQ [Suspect]
     Active Substance: MIRABEGRON
     Indication: POLLAKIURIA
  16. MYRBETRIQ [Suspect]
     Active Substance: MIRABEGRON
     Indication: URINARY INCONTINENCE
  17. MELATONIN [Concomitant]
     Active Substance: MELATONIN
     Indication: PRODUCT USED FOR UNKNOWN INDICATION
     Route: 048
  18. DITROPAN [Concomitant]
     Active Substance: OXYBUTYNIN CHLORIDE
     Indication: URINARY INCONTINENCE
  19. VAGIFEM [Concomitant]
     Active Substance: ESTRADIOL
     Indication: POLLAKIURIA
  20. PROZAC [Concomitant]
     Active Substance: FLUOXETINE HYDROCHLORIDE
     Indication: PRODUCT USED FOR UNKNOWN INDICATION
     Dosage: UNK UNK, UNKNOWN FREQ.
     Route: 048
  21. ANTIVERT                           /00007101/ [Concomitant]
     Indication: PRODUCT USED FOR UNKNOWN INDICATION
     Dosage: 25 MG, THRICE DAILY AS NEEDED
     Route: 048
  22. DITROPAN [Concomitant]
     Active Substance: OXYBUTYNIN CHLORIDE
     Indication: MICTURITION URGENCY
     Route: 048
  23. PYRIDIUM [Concomitant]
     Active Substance: PHENAZOPYRIDINE
     Indication: PAIN
     Route: 048

REACTIONS (1)
  - Drug ineffective [Unknown]

NARRATIVE: CASE EVENT DATE: 201308
